FAERS Safety Report 23286667 (Version 1)
Quarter: 2023Q4

REPORT INFORMATION
  Report Type: Spontaneous
  Country: US (occurrence: US)
  Receive Date: 20231212
  Receipt Date: 20231212
  Transmission Date: 20240109
  Serious: No
  Sender: FDA-Public Use
  Company Number: US-Ipsen Biopharmaceuticals, Inc.-2023-27229

PATIENT
  Age: 37 Year
  Sex: Female

DRUGS (1)
  1. DYSPORT [Suspect]
     Active Substance: ABOBOTULINUMTOXINA
     Indication: Skin wrinkling
     Route: 065
     Dates: start: 20231128, end: 20231128

REACTIONS (2)
  - Injection site swelling [Not Recovered/Not Resolved]
  - Product preparation issue [Unknown]

NARRATIVE: CASE EVENT DATE: 20231204
